FAERS Safety Report 4566502-2 (Version None)
Quarter: 2005Q1

REPORT INFORMATION
  Report Type: 
  Country: None (occurrence: None)
  Receive Date: 20050126
  Receipt Date: 20050126
  Transmission Date: 20050727
  Serious: No
  Sender: FDA-Public Use
  Company Number: None

PATIENT
  Age: 31 Year
  Sex: Female
  Weight: 78.0187 kg

DRUGS (3)
  1. FENTANYL [Suspect]
     Indication: INTERVERTEBRAL DISC DISORDER
     Dosage: 100 MCGS IV
     Route: 042
     Dates: start: 20050120
  2. FENTANYL [Suspect]
     Indication: MYELOPATHY
     Dosage: 100 MCGS IV
     Route: 042
     Dates: start: 20050120
  3. VERSED [Concomitant]

REACTIONS (1)
  - RASH [None]
